FAERS Safety Report 8797641 (Version 2)
Quarter: 2013Q1

REPORT INFORMATION
  Report Type: Spontaneous
  Country: US (occurrence: US)
  Receive Date: 20120919
  Receipt Date: 20130128
  Transmission Date: 20140127
  Serious: No
  Sender: FDA-Public Use
  Company Number: US-009507513-1209USA006341

PATIENT
  Age: 47 Year
  Sex: Male
  Weight: 128.8 kg

DRUGS (1)
  1. JUVISYNC [Suspect]
     Indication: TYPE 2 DIABETES MELLITUS
     Dosage: 10/40, QD
     Route: 048
     Dates: start: 20120216, end: 20120628

REACTIONS (1)
  - Pain in extremity [Recovered/Resolved]
